FAERS Safety Report 11719872 (Version 6)
Quarter: 2017Q1

REPORT INFORMATION
  Report Type: Spontaneous
  Country: US (occurrence: US)
  Receive Date: 20151110
  Receipt Date: 20170209
  Transmission Date: 20170428
  Serious: Yes (Hospitalization, Disabling, Other)
  Sender: FDA-Public Use
  Company Number: US-009507513-1511USA005084

PATIENT
  Sex: Female
  Weight: 84.35 kg

DRUGS (6)
  1. FOSAMAX PLUS D [Suspect]
     Active Substance: ALENDRONATE SODIUM\CHOLECALCIFEROL
     Indication: OSTEOPOROSIS
     Dosage: 70MG-2800MG QW
     Route: 048
     Dates: start: 20060504, end: 200812
  2. FOSAMAX PLUS D [Suspect]
     Active Substance: ALENDRONATE SODIUM\CHOLECALCIFEROL
     Dosage: 70MG-2800MG QW
     Route: 048
     Dates: start: 200908, end: 200910
  3. ALENDRONATE SODIUM. [Suspect]
     Active Substance: ALENDRONATE SODIUM
     Dosage: 70 UNK, UNK
     Route: 048
     Dates: start: 201011, end: 201205
  4. FOSAMAX [Suspect]
     Active Substance: ALENDRONATE SODIUM
     Indication: OSTEOPOROSIS
     Dosage: 10 MG, QD
     Route: 048
     Dates: start: 19980713, end: 200412
  5. ALENDRONATE SODIUM. [Suspect]
     Active Substance: ALENDRONATE SODIUM
     Indication: OSTEOPOROSIS
     Dosage: 70 MG, UNK
     Route: 048
     Dates: start: 20090109, end: 201205
  6. FOSAMAX [Suspect]
     Active Substance: ALENDRONATE SODIUM
     Dosage: 70 MG, QW
     Route: 048
     Dates: start: 200501, end: 200604

REACTIONS (38)
  - Hypokalaemia [Unknown]
  - Rib fracture [Unknown]
  - Stent placement [Unknown]
  - Vitamin D deficiency [Unknown]
  - Hyperlipidaemia [Not Recovered/Not Resolved]
  - Arthritis [Unknown]
  - Back injury [Unknown]
  - Hypothyroidism [Unknown]
  - Bone trimming [Unknown]
  - Pain in extremity [Unknown]
  - Road traffic accident [Unknown]
  - Haemorrhage [Unknown]
  - Hypertension [Not Recovered/Not Resolved]
  - Fracture delayed union [Recovering/Resolving]
  - Adverse event [Unknown]
  - Rotator cuff syndrome [Unknown]
  - Thyroid disorder [Unknown]
  - Arthralgia [Unknown]
  - Coronary artery disease [Unknown]
  - Ankle fracture [Unknown]
  - Weight increased [Unknown]
  - Body height decreased [Unknown]
  - Osteoporosis [Not Recovered/Not Resolved]
  - Limb operation [Unknown]
  - Stress fracture [Not Recovered/Not Resolved]
  - Oral surgery [Unknown]
  - Kyphosis [Unknown]
  - Fibula fracture [Unknown]
  - Barrett^s oesophagus [Unknown]
  - Thyroidectomy [Unknown]
  - Shoulder operation [Unknown]
  - Deafness [Unknown]
  - Femur fracture [Recovered/Resolved with Sequelae]
  - Back pain [Unknown]
  - Balance disorder [Unknown]
  - Gait disturbance [Unknown]
  - Visual acuity reduced [Unknown]
  - Gastrooesophageal reflux disease [Unknown]

NARRATIVE: CASE EVENT DATE: 20030313
